FAERS Safety Report 6922623-8 (Version None)
Quarter: 2010Q3

REPORT INFORMATION
  Report Type: 
  Country: None (occurrence: None)
  Receive Date: 20100813
  Receipt Date: 20100803
  Transmission Date: 20110219
  Serious: Yes (Other)
  Sender: FDA-Public Use
  Company Number: PHHY2010BR24213

PATIENT
  Sex: Female

DRUGS (1)
  1. FORASEQ [Suspect]
     Dosage: BID

REACTIONS (3)
  - CATARACT [None]
  - DEVICE MALFUNCTION [None]
  - VISUAL ACUITY REDUCED [None]
